FAERS Safety Report 5302046-8 (Version None)
Quarter: 2007Q2

REPORT INFORMATION
  Report Type: 
  Country: None (occurrence: None)
  Receive Date: 20070413
  Receipt Date: 20070405
  Transmission Date: 20071010
  Serious: Yes (Hospitalization)
  Sender: FDA-Public Use
  Company Number: THQ2007A00134

PATIENT
  Age: 66 Year
  Sex: Male

DRUGS (6)
  1. ACTOS [Suspect]
     Indication: DIABETES MELLITUS NON-INSULIN-DEPENDENT
     Dosage: 45 MG (45 MG, 1 IN 1 D)
     Route: 048
     Dates: start: 20060811, end: 20061201
  2. ZYPREXA [Suspect]
     Indication: BIPOLAR DISORDER
     Dosage: 5 MG, EACH EVENING)
     Dates: start: 20061201, end: 20070101
  3. LITHIUM CARBONATE [Suspect]
     Indication: BIPOLAR DISORDER
     Dosage: 2 GM (1 GM, 2 IN 1 D)
     Dates: start: 20070101
  4. COUMADIN [Concomitant]
  5. METFORMIN (METFORMIN HYDROCHLORIDE) [Concomitant]
  6. DIAMIACRON (GLICLAZIDE) [Concomitant]

REACTIONS (8)
  - BALANCE DISORDER [None]
  - DIABETES MELLITUS INADEQUATE CONTROL [None]
  - DRUG INTERACTION [None]
  - NEPHROPATHY TOXIC [None]
  - OEDEMA [None]
  - THERAPEUTIC AGENT TOXICITY [None]
  - TREMOR [None]
  - WEIGHT INCREASED [None]
